FAERS Safety Report 4708408-1 (Version None)
Quarter: 2005Q3

REPORT INFORMATION
  Report Type: 
  Country: None (occurrence: None)
  Receive Date: 20050707
  Receipt Date: 20050629
  Transmission Date: 20060218
  Serious: Yes (Hospitalization, Disabling)
  Sender: FDA-Public Use
  Company Number: US-ROCHE-409506

PATIENT
  Sex: Male

DRUGS (1)
  1. ACCUTANE [Suspect]
     Indication: ACNE
     Route: 048

REACTIONS (5)
  - ARTHROPATHY [None]
  - BONE DISORDER [None]
  - EPIPHYSEAL DISORDER [None]
  - JOINT DISLOCATION [None]
  - PATELLOFEMORAL PAIN SYNDROME [None]
